FAERS Safety Report 9153873 (Version 1)
Quarter: 2013Q1

REPORT INFORMATION
  Report Type: Spontaneous
  Country: US (occurrence: None)
  Receive Date: 20130308
  Receipt Date: 20130308
  Transmission Date: 20140127
  Serious: Yes (Other)
  Sender: FDA-Public Use
  Company Number: None

PATIENT
  Age: 65 Year
  Sex: Female

DRUGS (1)
  1. LEVOFLOXACIN [Suspect]
     Indication: PULMONARY CONGESTION
     Dosage: 1 TABLET/DAY 7 TABLETS
     Dates: start: 20130221, end: 20130225

REACTIONS (4)
  - Arthralgia [None]
  - Mobility decreased [None]
  - Tendon rupture [None]
  - Musculoskeletal pain [None]
